FAERS Safety Report 4884514-6 (Version None)
Quarter: 2006Q1

REPORT INFORMATION
  Report Type: 
  Country: None (occurrence: None)
  Receive Date: 20060119
  Receipt Date: 20060106
  Transmission Date: 20060701
  Serious: Yes (Hospitalization)
  Sender: FDA-Public Use
  Company Number: FR-AVENTIS-200610113FR

PATIENT
  Age: 76 Year
  Sex: Female
  Weight: 51 kg

DRUGS (11)
  1. LOVENOX [Suspect]
     Indication: TRANSIENT ISCHAEMIC ATTACK
     Route: 058
     Dates: start: 20051023, end: 20051029
  2. KARDEGIC [Suspect]
     Indication: TRANSIENT ISCHAEMIC ATTACK
     Route: 048
     Dates: start: 20051001, end: 20051029
  3. TEGRETOL [Concomitant]
     Route: 048
  4. MEDIATENSYL [Concomitant]
     Indication: ESSENTIAL HYPERTENSION
     Route: 048
  5. CELECTOL [Concomitant]
     Indication: ESSENTIAL HYPERTENSION
     Route: 048
  6. LASILIX [Concomitant]
     Route: 048
  7. DIAFUSOR [Concomitant]
     Route: 062
  8. TRIVASTAL [Concomitant]
  9. DIFFU K [Concomitant]
     Route: 048
  10. VASTEN [Concomitant]
     Route: 048
  11. CALTRATE [Concomitant]
     Route: 048

REACTIONS (4)
  - ANAEMIA [None]
  - DUODENAL ULCER [None]
  - GASTRIC ULCER [None]
  - HAEMATEMESIS [None]
